FAERS Safety Report 5030462-0 (Version None)
Quarter: 2006Q2

REPORT INFORMATION
  Report Type: 
  Country: None (occurrence: None)
  Receive Date: 20060614
  Receipt Date: 20060530
  Transmission Date: 20061013
  Serious: Yes (Hospitalization)
  Sender: FDA-Public Use
  Company Number: 226074

PATIENT
  Age: 63 Year
  Sex: Male

DRUGS (4)
  1. AVASTIN [Suspect]
     Indication: COLORECTAL CANCER METASTATIC
     Dates: start: 20060414
  2. OXALIPLATIN (OXALIPLATIN) [Suspect]
     Indication: COLORECTAL CANCER METASTATIC
     Dosage: 85 MG/M2, Q2W, INTRAVENOUS
     Route: 042
     Dates: start: 20060412
  3. LEUCOVORIN CALCIUM [Suspect]
     Indication: COLORECTAL CANCER METASTATIC
     Dosage: 1/WEEK, INTRAVENOUS
     Route: 042
     Dates: start: 20060412
  4. FLUOROURACIL [Suspect]
     Indication: COLORECTAL CANCER METASTATIC
     Dosage: 2600 MG/M2, INTRAVENOUS
     Route: 042
     Dates: start: 20060412

REACTIONS (1)
  - LEUKOCYTOCLASTIC VASCULITIS [None]
